FAERS Safety Report 4489196-3 (Version None)
Quarter: 2004Q4

REPORT INFORMATION
  Report Type: 
  Country: None (occurrence: None)
  Receive Date: 20041029
  Receipt Date: 20041020
  Transmission Date: 20050328
  Serious: Yes (Other)
  Sender: FDA-Public Use
  Company Number: GB-JNJFOC-20041006540

PATIENT
  Age: 31 Year
  Sex: Female
  Weight: 65 kg

DRUGS (1)
  1. RISPERDAL [Suspect]
     Indication: BIPOLAR DISORDER
     Route: 049

REACTIONS (3)
  - HYPERPROLACTINAEMIA [None]
  - HYPOTHYROIDISM [None]
  - LOSS OF LIBIDO [None]
